FAERS Safety Report 7422516-6 (Version None)
Quarter: 2011Q2

REPORT INFORMATION
  Report Type: 
  Country: None (occurrence: None)
  Receive Date: 20110419
  Receipt Date: 20110410
  Transmission Date: 20111010
  Serious: No
  Sender: FDA-Public Use
  Company Number: US-BIOGENIDEC-2011BI013328

PATIENT
  Age: 29 Year
  Sex: Female

DRUGS (1)
  1. AVONEX [Suspect]
     Indication: MULTIPLE SCLEROSIS
     Route: 030
     Dates: start: 20110327

REACTIONS (4)
  - INFLUENZA LIKE ILLNESS [None]
  - UNDERDOSE [None]
  - INJECTION SITE RASH [None]
  - INJECTION SITE PAIN [None]
